FAERS Safety Report 15126444 (Version 1)
Quarter: 2018Q3

REPORT INFORMATION
  Report Type: Spontaneous
  Country: US (occurrence: US)
  Receive Date: 20180710
  Receipt Date: 20180710
  Transmission Date: 20181010
  Serious: Yes (Hospitalization)
  Sender: FDA-Public Use
  Company Number: US-MYLANLABS-2018M1049356

PATIENT
  Age: 40 Year
  Sex: Male

DRUGS (11)
  1. MYCOPHENOLATE MOFETIL. [Suspect]
     Active Substance: MYCOPHENOLATE MOFETIL
     Indication: PROPHYLAXIS AGAINST GRAFT VERSUS HOST DISEASE
     Dosage: ADMINISTERED FROM DAY 3 POST TRANSPLANT
     Route: 065
  2. PREDNISONE. [Interacting]
     Active Substance: PREDNISONE
     Indication: GRAFT VERSUS HOST DISEASE IN GASTROINTESTINAL TRACT
     Route: 065
  3. RIFABUTIN. [Interacting]
     Active Substance: RIFABUTIN
     Dosage: 450 MG
     Route: 065
  4. ISONIAZID. [Interacting]
     Active Substance: ISONIAZID
     Indication: TUBERCULOSIS
     Dosage: 300 MG, QD, RIPE REGIMEN
     Route: 048
  5. CYCLOPHOSPHAMIDE. [Interacting]
     Active Substance: CYCLOPHOSPHAMIDE
     Indication: PRODUCT USED FOR UNKNOWN INDICATION
     Route: 065
  6. ETHAMBUTOL [Interacting]
     Active Substance: ETHAMBUTOL HYDROCHLORIDE
     Indication: TUBERCULOSIS
     Dosage: 1200 MG, QD, RIPE REGIMEN
     Route: 048
  7. FLUDARABINE [Interacting]
     Active Substance: FLUDARABINE PHOSPHATE
     Indication: SURGICAL PRECONDITIONING
     Route: 065
  8. RIFABUTIN. [Interacting]
     Active Substance: RIFABUTIN
     Indication: TUBERCULOSIS
     Dosage: 300 MG, QD, RIPE REGIMEN
     Route: 048
  9. CYCLOSPORIN A [Interacting]
     Active Substance: CYCLOSPORINE
     Indication: PROPHYLAXIS AGAINST GRAFT VERSUS HOST DISEASE
     Dosage: ADMINISTERED FROM DAY 3 POST TRANSPLANT
     Route: 065
  10. THIOTEPA. [Interacting]
     Active Substance: THIOTEPA
     Indication: SURGICAL PRECONDITIONING
     Route: 065
  11. PYRAZINAMIDE. [Interacting]
     Active Substance: PYRAZINAMIDE
     Indication: TUBERCULOSIS
     Dosage: 1500 MG, QD, RIPE REGIMEN
     Route: 048

REACTIONS (3)
  - Immune reconstitution inflammatory syndrome associated tuberculosis [Recovered/Resolved]
  - Drug interaction [Recovered/Resolved]
  - Paradoxical drug reaction [Recovered/Resolved]
